FAERS Safety Report 15728427 (Version 1)
Quarter: 2018Q4

REPORT INFORMATION
  Report Type: Report from Study
  Country: US (occurrence: US)
  Receive Date: 20181217
  Receipt Date: 20181217
  Transmission Date: 20190205
  Serious: Yes (Other)
  Sender: FDA-Public Use
  Company Number: US-AMGEN-USASL2018177526

PATIENT
  Age: 47 Year
  Sex: Female

DRUGS (1)
  1. AIMOVIG [Suspect]
     Active Substance: ERENUMAB-AOOE
     Indication: MIGRAINE WITHOUT AURA
     Dosage: UNK, QMO
     Route: 065
     Dates: start: 2018

REACTIONS (3)
  - Anxiety [Unknown]
  - Palpitations [Unknown]
  - Depression [Unknown]

NARRATIVE: CASE EVENT DATE: 2018
